FAERS Safety Report 17466999 (Version 1)
Quarter: 2020Q1

REPORT INFORMATION
  Report Type: Spontaneous
  Country: US (occurrence: US)
  Receive Date: 20200227
  Receipt Date: 20200227
  Transmission Date: 20200409
  Serious: Yes (Death, Hospitalization)
  Sender: FDA-Public Use
  Company Number: US-MYLANLABS-2020M1020955

PATIENT
  Age: 20 Year
  Sex: Female

DRUGS (1)
  1. NALOXONE [Suspect]
     Active Substance: NALOXONE
     Indication: TOBACCO POISONING
     Route: 065

REACTIONS (1)
  - Drug ineffective [Fatal]
